FAERS Safety Report 15430153 (Version 1)
Quarter: 2018Q3

REPORT INFORMATION
  Report Type: Spontaneous
  Country: US (occurrence: US)
  Receive Date: 20180920
  Receipt Date: 20180920
  Transmission Date: 20181010
  Serious: Yes (Other)
  Sender: FDA-Public Use
  Company Number: None

PATIENT
  Age: 11 Year
  Sex: Male
  Weight: 54.89 kg

DRUGS (2)
  1. RISPERIDONE. [Suspect]
     Active Substance: RISPERIDONE
     Indication: GENERALISED ANXIETY DISORDER
     Route: 048
     Dates: start: 20080620, end: 20081216
  2. RISPERIDONE. [Suspect]
     Active Substance: RISPERIDONE
     Indication: AUTISM SPECTRUM DISORDER
     Route: 048
     Dates: start: 20080620, end: 20081216

REACTIONS (5)
  - Thinking abnormal [None]
  - Thought withdrawal [None]
  - Derealisation [None]
  - Social avoidant behaviour [None]
  - Loss of personal independence in daily activities [None]

NARRATIVE: CASE EVENT DATE: 20081215
